FAERS Safety Report 9004916 (Version 1)
Quarter: 2012Q4

REPORT INFORMATION
  Report Type: Spontaneous
  Country: GB (occurrence: None)
  Receive Date: 20121227
  Receipt Date: 20121227
  Transmission Date: 20130627
  Serious: Yes (Congenital Anomaly, Other)
  Sender: FDA-Public Use
  Company Number: GB-ACCORD-015683

PATIENT
  Sex: Male
  Weight: 3.5 kg

DRUGS (1)
  1. QUETIAPINE FUMARATE (QUETIAPINE FUMARATE) [Suspect]
     Route: 064

REACTIONS (2)
  - Anomaly of external ear congenital [None]
  - Maternal drugs affecting foetus [None]
